FAERS Safety Report 7746400-3 (Version None)
Quarter: 2011Q3

REPORT INFORMATION
  Report Type: 
  Country: None (occurrence: None)
  Receive Date: 20110913
  Receipt Date: 20110913
  Transmission Date: 20111222
  Serious: Yes (Other)
  Sender: FDA-Public Use
  Company Number: None

PATIENT
  Age: 82 Year
  Sex: Male
  Weight: 79.378 kg

DRUGS (1)
  1. GAMUNEX [Suspect]
     Indication: NEUROPATHY PERIPHERAL
     Dosage: 500ML
     Dates: start: 20110728, end: 20110729

REACTIONS (9)
  - INFLUENZA LIKE ILLNESS [None]
  - HYPOAESTHESIA [None]
  - MUSCULOSKELETAL STIFFNESS [None]
  - GAIT DISTURBANCE [None]
  - DRY MOUTH [None]
  - FATIGUE [None]
  - DYSGEUSIA [None]
  - MUSCULAR WEAKNESS [None]
  - DECREASED APPETITE [None]
